FAERS Safety Report 16669281 (Version 1)
Quarter: 2019Q3

REPORT INFORMATION
  Report Type: Spontaneous
  Country: BR (occurrence: BR)
  Receive Date: 20190805
  Receipt Date: 20190805
  Transmission Date: 20191004
  Serious: Yes (Other)
  Sender: FDA-Public Use
  Company Number: BR-TAKEDA-2019TUS039793

PATIENT
  Age: 67 Year
  Sex: Female
  Weight: 60 kg

DRUGS (8)
  1. HELMIZOL                           /00012501/ [Concomitant]
     Indication: INTESTINAL ULCER
     Dosage: 400 MILLIGRAM
     Route: 048
  2. SIMETHICONE (DIMETHICONE) [Concomitant]
     Active Substance: DIMETHICONE
     Indication: GASTROINTESTINAL INFECTION
  3. ALBENDAZOLE W/IVERMECTIN [Concomitant]
     Indication: GASTROINTESTINAL INFECTION
  4. HELMIZOL                           /00012501/ [Concomitant]
     Indication: GASTROINTESTINAL INFECTION
  5. DEXILANT [Suspect]
     Active Substance: DEXLANSOPRAZOLE
     Indication: INTESTINAL ULCER
     Dosage: 60 MILLIGRAM, QD
     Route: 048
     Dates: start: 20190515, end: 20190612
  6. SIMETHICONE (DIMETHICONE) [Concomitant]
     Active Substance: DIMETHICONE
     Indication: INTESTINAL ULCER
     Dosage: UNK
     Route: 048
  7. DEXILANT [Suspect]
     Active Substance: DEXLANSOPRAZOLE
     Indication: GASTROINTESTINAL INFECTION
  8. ALBENDAZOLE W/IVERMECTIN [Concomitant]
     Indication: INTESTINAL ULCER
     Dosage: 400 MILLILITER
     Route: 048

REACTIONS (7)
  - Peripheral swelling [Not Recovered/Not Resolved]
  - Oropharyngeal pain [Unknown]
  - Thrombosis [Not Recovered/Not Resolved]
  - Dizziness [Recovered/Resolved]
  - Cough [Recovered/Resolved]
  - Off label use [Unknown]
  - Insomnia [Recovered/Resolved]

NARRATIVE: CASE EVENT DATE: 20190515
